FAERS Safety Report 21926314 (Version 2)
Quarter: 2023Q1

REPORT INFORMATION
  Report Type: Spontaneous
  Country: JP (occurrence: JP)
  Receive Date: 20230130
  Receipt Date: 20230210
  Transmission Date: 20230418
  Serious: Yes (Hospitalization)
  Sender: FDA-Public Use
  Company Number: JP-LEO Pharma-348632

PATIENT
  Age: 72 Year
  Sex: Male

DRUGS (3)
  1. TACLONEX [Suspect]
     Active Substance: BETAMETHASONE DIPROPIONATE\CALCIPOTRIENE\CALCIPOTRIENE HYDRATE
     Indication: Psoriasis
     Dosage: UNKNOWN
     Route: 003
     Dates: start: 20220823
  2. TACLONEX [Suspect]
     Active Substance: BETAMETHASONE DIPROPIONATE\CALCIPOTRIENE\CALCIPOTRIENE HYDRATE
     Indication: Psoriasis
     Dosage: UNKNOWN
     Route: 003
     Dates: start: 20220823
  3. TACLONEX [Suspect]
     Active Substance: BETAMETHASONE DIPROPIONATE\CALCIPOTRIENE\CALCIPOTRIENE HYDRATE
     Indication: Psoriasis
     Dosage: UNKNOWN
     Route: 003
     Dates: start: 20220823

REACTIONS (4)
  - Genital haemorrhage [Unknown]
  - Haematemesis [Unknown]
  - Product use issue [Unknown]
  - Anal haemorrhage [Unknown]

NARRATIVE: CASE EVENT DATE: 20220823
